FAERS Safety Report 6696512-0 (Version None)
Quarter: 2010Q2

REPORT INFORMATION
  Report Type: 
  Country: None (occurrence: None)
  Receive Date: 20100426
  Receipt Date: 20100419
  Transmission Date: 20101027
  Serious: Yes (Hospitalization)
  Sender: FDA-Public Use
  Company Number: US-JNJFOC-20100400703

PATIENT
  Sex: Female
  Weight: 58.97 kg

DRUGS (16)
  1. FENTANYL-100 [Suspect]
     Indication: BACK PAIN
     Route: 062
  2. FENTANYL-100 [Suspect]
     Route: 062
  3. FENTANYL-100 [Suspect]
     Indication: PAIN
     Route: 062
  4. FENTANYL-100 [Suspect]
     Route: 062
  5. DURAGESIC-100 [Suspect]
     Indication: BACK PAIN
     Route: 062
  6. DURAGESIC-100 [Suspect]
     Route: 062
  7. DURAGESIC-100 [Suspect]
     Indication: PAIN
     Route: 062
  8. DURAGESIC-100 [Suspect]
     Route: 062
  9. DURAGESIC-100 [Suspect]
     Route: 062
  10. DURAGESIC-100 [Suspect]
     Route: 062
  11. GLUCOPHAGE [Suspect]
     Indication: DIABETES MELLITUS
     Route: 048
  12. FOSAMAX [Concomitant]
     Indication: ARTHRITIS
     Route: 048
  13. OMEPRAZOLE [Concomitant]
     Indication: DIVERTICULITIS
     Route: 048
  14. UNKNOWN MEDICATION [Concomitant]
     Indication: ASTHMA
     Route: 065
  15. HYDROCODONE BITARTRATE [Concomitant]
     Indication: PAIN
     Dosage: 75/750 MG
     Route: 048
  16. ACTIQ [Concomitant]
     Indication: PAIN
     Route: 002

REACTIONS (10)
  - APPLICATION SITE RASH [None]
  - ARTHRITIS [None]
  - BLOOD CHOLESTEROL INCREASED [None]
  - DIABETES MELLITUS [None]
  - DIARRHOEA [None]
  - DRUG INEFFECTIVE [None]
  - GASTRIC DISORDER [None]
  - HYPERTENSION [None]
  - NEUROPATHY PERIPHERAL [None]
  - THYROID DISORDER [None]
